FAERS Safety Report 7909961-7 (Version None)
Quarter: 2011Q4

REPORT INFORMATION
  Report Type: 
  Country: None (occurrence: None)
  Receive Date: 20111111
  Receipt Date: 20111107
  Transmission Date: 20120403
  Serious: Yes (Other)
  Sender: FDA-Public Use
  Company Number: US-ABBOTT-11P-163-0872158-00

PATIENT
  Sex: Female
  Weight: 68.1 kg

DRUGS (10)
  1. HUMIRA [Suspect]
     Indication: RHEUMATOID ARTHRITIS
     Dates: start: 20080101
  2. PROAIR HFA [Concomitant]
     Indication: ASTHMA
  3. PROVENTIL [Concomitant]
     Indication: ASTHMA
  4. LISINOPRIL [Concomitant]
     Indication: HYPERTENSION
  5. MELOXICAM [Concomitant]
     Indication: RHEUMATOID ARTHRITIS
  6. BIETTA [Concomitant]
     Indication: DIABETES MELLITUS
  7. LEUKOVORIN [Concomitant]
     Indication: RHEUMATOID ARTHRITIS
  8. THEO-DUR [Concomitant]
     Indication: ASTHMA
  9. METFORMIN HCL [Concomitant]
     Indication: DIABETES MELLITUS
  10. LASIX [Concomitant]
     Indication: FLUID RETENTION

REACTIONS (4)
  - GOUT [None]
  - BUNION [None]
  - SYNOVIAL CYST [None]
  - PAIN [None]
